FAERS Safety Report 8049635-8 (Version None)
Quarter: 2012Q1

REPORT INFORMATION
  Report Type: 
  Country: None (occurrence: None)
  Receive Date: 20120117
  Receipt Date: 20120104
  Transmission Date: 20120608
  Serious: Yes (Hospitalization)
  Sender: FDA-Public Use
  Company Number: KR-SANOFI-AVENTIS-2012SA000936

PATIENT
  Age: 52 Year
  Sex: Female
  Weight: 57.6 kg

DRUGS (4)
  1. DOCETAXEL [Suspect]
     Indication: BREAST CANCER
     Route: 041
     Dates: start: 20111013, end: 20111013
  2. DOCETAXEL [Suspect]
     Route: 041
     Dates: start: 20111215, end: 20111215
  3. BLINDED THERAPY [Suspect]
     Route: 042
     Dates: start: 20111215, end: 20111215
  4. BLINDED THERAPY [Suspect]
     Indication: BREAST CANCER
     Route: 042
     Dates: start: 20111013, end: 20111013

REACTIONS (1)
  - MOOD ALTERED [None]
